FAERS Safety Report 25570980 (Version 1)
Quarter: 2025Q3

REPORT INFORMATION
  Report Type: Spontaneous
  Country: US (occurrence: US)
  Receive Date: 20250717
  Receipt Date: 20250717
  Transmission Date: 20251020
  Serious: No
  Sender: AMNEAL
  Company Number: US-AMNEAL PHARMACEUTICALS-2025-AMRX-01446

PATIENT
  Sex: Female

DRUGS (3)
  1. ESTRADIOL [Suspect]
     Active Substance: ESTRADIOL
     Indication: Product used for unknown indication
     Dosage: 10MCG, 1 TABLETS, 2 /WEEK
     Route: 067
  2. ESTRADIOL [Suspect]
     Active Substance: ESTRADIOL
     Dosage: 10MCG, 1 TABLETS, 2 /WEEK
     Route: 067
  3. ESTRADIOL [Suspect]
     Active Substance: ESTRADIOL
     Dosage: 10MCG, 1 TABLETS, 2 /WEEK
     Route: 067

REACTIONS (2)
  - Product odour abnormal [Unknown]
  - No adverse event [Unknown]
